FAERS Safety Report 6521999-3 (Version None)
Quarter: 2009Q4

REPORT INFORMATION
  Report Type: 
  Country: None (occurrence: None)
  Receive Date: 20091214
  Receipt Date: 20090721
  Transmission Date: 20100525
  Serious: Yes (Other)
  Sender: FDA-Public Use
  Company Number: 645541

PATIENT
  Age: 43 Year
  Sex: Male
  Weight: 62.6 kg

DRUGS (1)
  1. PEGASYS [Suspect]
     Indication: HEPATITIS C
     Dates: start: 20070907, end: 20081001

REACTIONS (2)
  - PARANOIA [None]
  - PSYCHOTIC DISORDER [None]
